FAERS Safety Report 10037952 (Version 1)
Quarter: 2014Q1

REPORT INFORMATION
  Report Type: Spontaneous
  Country: US (occurrence: None)
  Receive Date: 20140325
  Receipt Date: 20140325
  Transmission Date: 20141002
  Serious: Yes (Other)
  Sender: FDA-Public Use
  Company Number: None

PATIENT
  Age: 62 Year
  Sex: Male
  Weight: 123.38 kg

DRUGS (6)
  1. VISIPAQUE 320 100ML GE HEALTHCARE [Suspect]
     Indication: ARTERIOGRAM
     Route: 042
     Dates: start: 20140211, end: 20140227
  2. VISIPAQUE 320 100ML GE HEALTHCARE [Suspect]
     Indication: RADIOEMBOLISATION
     Route: 042
     Dates: start: 20140211, end: 20140227
  3. ZOSYN [Concomitant]
  4. FENTANYL [Concomitant]
  5. PEPCID [Concomitant]
  6. VERSED [Concomitant]

REACTIONS (2)
  - Rash [None]
  - Contrast media allergy [None]
